FAERS Safety Report 9606414 (Version 1)
Quarter: 2013Q4

REPORT INFORMATION
  Report Type: Spontaneous
  Country: US (occurrence: US)
  Receive Date: 20131008
  Receipt Date: 20131008
  Transmission Date: 20140711
  Serious: No
  Sender: FDA-Public Use
  Company Number: US-AMGEN-USASP2013051606

PATIENT
  Age: 89 Year
  Sex: Female

DRUGS (3)
  1. PROLIA [Suspect]
     Indication: OSTEOPOROSIS POSTMENOPAUSAL
     Dosage: UNK
     Dates: start: 201106, end: 201303
  2. FOSAMAX [Concomitant]
  3. BONIVA [Concomitant]

REACTIONS (1)
  - Pruritus generalised [Not Recovered/Not Resolved]
